FAERS Safety Report 17709215 (Version 2)
Quarter: 2025Q3

REPORT INFORMATION
  Report Type: Spontaneous
  Country: EU (occurrence: EU)
  Receive Date: 20200426
  Receipt Date: 20250826
  Transmission Date: 20251021
  Serious: Yes (Life-Threatening, Hospitalization, Other)
  Sender: AUROBINDO
  Company Number: EU-TEVA-2020-DE-1219407

PATIENT
  Age: 16 Year
  Sex: Male

DRUGS (1)
  1. AMIODARONE [Suspect]
     Active Substance: AMIODARONE
     Indication: Ventricular tachycardia
     Route: 065

REACTIONS (5)
  - Loss of consciousness [Recovering/Resolving]
  - Ejection fraction decreased [Recovering/Resolving]
  - Haemodynamic instability [Recovering/Resolving]
  - Bradycardia [Recovered/Resolved]
  - Drug ineffective [Unknown]
